FAERS Safety Report 8406879-0 (Version None)
Quarter: 2012Q2

REPORT INFORMATION
  Report Type: 
  Country: None (occurrence: None)
  Receive Date: 20120604
  Receipt Date: 20120514
  Transmission Date: 20120825
  Serious: No
  Sender: FDA-Public Use
  Company Number: US-TEVA-338362USA

PATIENT
  Sex: Female
  Weight: 61.29 kg

DRUGS (2)
  1. PROAIR HFA [Suspect]
     Indication: BRONCHITIS
     Dates: start: 20120420, end: 20120420
  2. ORAL CONTRACEPTIVE NOS [Concomitant]

REACTIONS (1)
  - HEART RATE INCREASED [None]
